FAERS Safety Report 13031574 (Version 3)
Quarter: 2017Q1

REPORT INFORMATION
  Report Type: Spontaneous
  Country: US (occurrence: HN)
  Receive Date: 20161215
  Receipt Date: 20170127
  Transmission Date: 20170428
  Serious: Yes (Hospitalization, Other)
  Sender: FDA-Public Use
  Company Number: US-SA-2016SA224095

PATIENT
  Age: 16 Year
  Sex: Female

DRUGS (11)
  1. CHLOROQUINE. [Suspect]
     Active Substance: CHLOROQUINE
     Indication: MALARIA PROPHYLAXIS
     Route: 065
  2. LORAZEPAM. [Interacting]
     Active Substance: LORAZEPAM
     Indication: ANXIETY
     Route: 065
  3. OLANZAPINE. [Interacting]
     Active Substance: OLANZAPINE
  4. AZITHROMYCIN ANHYDROUS. [Concomitant]
     Active Substance: AZITHROMYCIN ANHYDROUS
     Indication: PNEUMONIA MYCOPLASMAL
  5. DIPHENHYDRAMINE. [Interacting]
     Active Substance: DIPHENHYDRAMINE
     Route: 065
  6. FLUOXETINE [Interacting]
     Active Substance: FLUOXETINE HYDROCHLORIDE
     Route: 065
  7. CLONAZEPAM. [Interacting]
     Active Substance: CLONAZEPAM
     Route: 065
  8. OLANZAPINE. [Interacting]
     Active Substance: OLANZAPINE
  9. BENZATROPINE MESILATE [Interacting]
     Active Substance: BENZTROPINE
     Route: 065
  10. RISPERIDONE. [Interacting]
     Active Substance: RISPERIDONE
     Route: 065
  11. OLANZAPINE. [Interacting]
     Active Substance: OLANZAPINE
     Route: 065

REACTIONS (13)
  - Toxicity to various agents [Recovered/Resolved]
  - Confusional state [Recovered/Resolved]
  - Hallucination [Recovering/Resolving]
  - Toxic encephalopathy [Recovering/Resolving]
  - Facial paralysis [Recovering/Resolving]
  - Areflexia [Recovering/Resolving]
  - Drug interaction [Unknown]
  - Paranoia [Recovered/Resolved]
  - Condition aggravated [Unknown]
  - Anxiety [Recovering/Resolving]
  - Insomnia [Recovering/Resolving]
  - Amaurosis [Recovering/Resolving]
  - Mydriasis [Recovering/Resolving]
